FAERS Safety Report 7887964-9 (Version None)
Quarter: 2011Q4

REPORT INFORMATION
  Report Type: 
  Country: None (occurrence: None)
  Receive Date: 20111103
  Receipt Date: 20111028
  Transmission Date: 20120403
  Serious: Yes (Hospitalization, Other)
  Sender: FDA-Public Use
  Company Number: US-SANOFI-AVENTIS-2011SA068590

PATIENT
  Sex: Female
  Weight: 90.91 kg

DRUGS (3)
  1. LANTUS [Suspect]
     Dosage: 38 UNITS IN THE AM AND 12 UNITS IN THE PM
     Route: 058
     Dates: start: 20050101
  2. NOVOLOG [Concomitant]
  3. SOLOSTAR [Suspect]
     Dates: start: 20050101

REACTIONS (2)
  - HOSPITALISATION [None]
  - KNEE ARTHROPLASTY [None]
